FAERS Safety Report 6704052-5 (Version None)
Quarter: 2010Q2

REPORT INFORMATION
  Report Type: 
  Country: None (occurrence: None)
  Receive Date: 20100430
  Receipt Date: 20100422
  Transmission Date: 20101027
  Serious: Yes (Other)
  Sender: FDA-Public Use
  Company Number: GB-BAYER-201023350GPV

PATIENT
  Age: 57 Year
  Sex: Male

DRUGS (4)
  1. LEVITRA [Suspect]
     Indication: ERECTILE DYSFUNCTION
     Route: 048
     Dates: start: 20091116
  2. ITRACONAZOLE [Concomitant]
     Indication: ONYCHOMYCOSIS
     Route: 048
     Dates: start: 20100113, end: 20100201
  3. LYRICA [Concomitant]
     Indication: NEURALGIA
     Dosage: AS USED: 75 MG
     Route: 048
     Dates: start: 20091101
  4. OMEPRAZOLE [Concomitant]
     Indication: DYSPEPSIA
     Route: 048
     Dates: start: 20100224

REACTIONS (2)
  - ANALGESIC THERAPY [None]
  - THERAPEUTIC RESPONSE UNEXPECTED [None]
